FAERS Safety Report 5349991-5 (Version None)
Quarter: 2007Q2

REPORT INFORMATION
  Report Type: 
  Country: None (occurrence: None)
  Receive Date: 20070607
  Receipt Date: 20070528
  Transmission Date: 20071010
  Serious: Yes (Disabling, Other)
  Sender: FDA-Public Use
  Company Number: JP-PFIZER INC-2007045428

PATIENT
  Age: 43 Year
  Sex: Female

DRUGS (1)
  1. CEFPODOXIME PROXETIL TABLET [Suspect]
     Dates: start: 20030301, end: 20030401

REACTIONS (2)
  - TOXIC EPIDERMAL NECROLYSIS [None]
  - VISUAL ACUITY REDUCED [None]
